FAERS Safety Report 6549858-0 (Version None)
Quarter: 2010Q1

REPORT INFORMATION
  Report Type: 
  Country: None (occurrence: None)
  Receive Date: 20100125
  Receipt Date: 20100115
  Transmission Date: 20100710
  Serious: Yes (Hospitalization, Other)
  Sender: FDA-Public Use
  Company Number: JP-BAYER-200913513BYL

PATIENT
  Age: 59 Year
  Sex: Male
  Weight: 66 kg

DRUGS (4)
  1. NEXAVAR [Suspect]
     Indication: HEPATIC NEOPLASM MALIGNANT
     Dosage: UNIT DOSE: 200 MG
     Route: 048
     Dates: start: 20091024, end: 20091104
  2. NEXAVAR [Suspect]
     Dosage: TOTAL DAILY DOSE: 800 MG  UNIT DOSE: 200 MG
     Route: 048
     Dates: start: 20090821, end: 20090831
  3. BARACLUDE [Suspect]
     Indication: HEPATITIS B
     Dosage: UNIT DOSE: 0.5 MG
     Route: 048
     Dates: end: 20091030
  4. BARACLUDE [Suspect]
     Dosage: UNIT DOSE: 0.5 MG
     Route: 048
     Dates: start: 20091127

REACTIONS (4)
  - HEPATIC FUNCTION ABNORMAL [None]
  - HYPERAMMONAEMIA [None]
  - HYPERBILIRUBINAEMIA [None]
  - PALMAR-PLANTAR ERYTHRODYSAESTHESIA SYNDROME [None]
